FAERS Safety Report 24207021 (Version 3)
Quarter: 2025Q1

REPORT INFORMATION
  Report Type: Spontaneous
  Country: US (occurrence: US)
  Receive Date: 20240813
  Receipt Date: 20250326
  Transmission Date: 20250408
  Serious: No
  Sender: SANOFI AVENTIS
  Company Number: US-SA-SAC20240807000164

PATIENT
  Age: 36 Year
  Sex: Female
  Weight: 40 kg

DRUGS (3)
  1. DUPIXENT [Suspect]
     Active Substance: DUPILUMAB
     Indication: Eosinophilic oesophagitis
     Dosage: 300 MG, QOW
     Route: 058
     Dates: start: 20240731
  2. MELOXICAM [Concomitant]
     Active Substance: MELOXICAM
  3. TRAMADOL [Concomitant]
     Active Substance: TRAMADOL

REACTIONS (6)
  - Mental disorder [Unknown]
  - Injection site urticaria [Recovered/Resolved]
  - Injection site erythema [Recovered/Resolved]
  - Product preparation error [Unknown]
  - Inappropriate schedule of product administration [Unknown]
  - Carpal tunnel decompression [Unknown]

NARRATIVE: CASE EVENT DATE: 20240731
